FAERS Safety Report 20960603 (Version 2)
Quarter: 2022Q3

REPORT INFORMATION
  Report Type: Spontaneous
  Country: JP (occurrence: None)
  Receive Date: 20220615
  Receipt Date: 20220726
  Transmission Date: 20221027
  Serious: Yes (Death, Hospitalization, Other)
  Sender: FDA-Public Use
  Company Number: JP-Unichem Pharmaceuticals (USA) Inc-UCM202206-000536

PATIENT
  Sex: Male
  Weight: 57 kg

DRUGS (8)
  1. AMIODARONE HYDROCHLORIDE [Suspect]
     Active Substance: AMIODARONE HYDROCHLORIDE
     Indication: Arrhythmia
     Route: 048
  2. Walfarin potassium [Concomitant]
     Indication: Product used for unknown indication
  3. Aspirin Dialuminate [Concomitant]
     Indication: Product used for unknown indication
  4. Penidipine Hydrochloride [Concomitant]
     Indication: Product used for unknown indication
  5. TRICHLORMETHIAZIDE [Concomitant]
     Active Substance: TRICHLORMETHIAZIDE
     Indication: Product used for unknown indication
  6. Perindopril  Erbumin [Concomitant]
     Indication: Product used for unknown indication
  7. Frosemide [Concomitant]
     Indication: Product used for unknown indication
     Dosage: 0.5 TABLETS ONCE AFTER BREAKFAST
  8. INSULIN GLARGINE [Concomitant]
     Active Substance: INSULIN GLARGINE
     Indication: Product used for unknown indication
     Dosage: 2 UNITS BEFORE SLEEP

REACTIONS (3)
  - Hepatic failure [Fatal]
  - Hepatic cirrhosis [Fatal]
  - Drug-induced liver injury [Fatal]
